FAERS Safety Report 6191748-X (Version None)
Quarter: 2009Q2

REPORT INFORMATION
  Report Type: 
  Country: None (occurrence: None)
  Receive Date: 20090515
  Receipt Date: 20090430
  Transmission Date: 20091009
  Serious: Yes (Hospitalization, Other)
  Sender: FDA-Public Use
  Company Number: US-PFIZER INC-2009207428

PATIENT
  Sex: Female
  Weight: 99.773 kg

DRUGS (19)
  1. LYRICA [Suspect]
     Indication: NEURALGIA
     Dosage: FREQUENCY: 3X/DAY, EVERY DAY;
     Dates: start: 20070701, end: 20080101
  2. NEURONTIN [Suspect]
     Indication: NEURALGIA
     Dosage: UNKNOWN
     Dates: start: 20080501, end: 20090212
  3. PREDNISONE [Suspect]
     Indication: HYPERSENSITIVITY
     Dosage: UNKNOWN
     Dates: start: 20080101, end: 20080101
  4. CODEINE [Suspect]
  5. DOXYCYCLINE HYCLATE [Suspect]
  6. PENICILLIN NOS [Suspect]
  7. HYZAAR [Concomitant]
     Dosage: 100 MG, UNK
  8. TOPROL-XL [Concomitant]
     Dosage: 200 MG, UNK
  9. RAMIPRIL [Concomitant]
     Dosage: 5 MG, UNK
  10. PREMARIN [Concomitant]
     Dosage: 0.45 MG, UNK
  11. GLUCOTROL XL [Concomitant]
     Dosage: 2.5 MG, 2X/DAY
  12. NEXIUM [Concomitant]
     Dosage: UNK
  13. ADVAIR HFA [Concomitant]
     Dosage: UNK
  14. CLONIDINE [Concomitant]
     Dosage: UNK
  15. LIPITOR [Concomitant]
     Dosage: UNK
  16. SYNTHROID [Concomitant]
     Dosage: 125 MCG
  17. CLARITIN [Concomitant]
     Dosage: UNK
  18. PROAIR HFA [Concomitant]
     Dosage: UNK
  19. SKELAXIN [Concomitant]
     Dosage: 800 MG, UNK

REACTIONS (10)
  - ABASIA [None]
  - BLISTER [None]
  - ECZEMA [None]
  - FALL [None]
  - HAEMORRHAGE [None]
  - PERONEAL NERVE PALSY [None]
  - SKIN DISORDER [None]
  - SKIN EXFOLIATION [None]
  - SWELLING [None]
  - WEIGHT INCREASED [None]
